FAERS Safety Report 22141239 (Version 1)
Quarter: 2023Q1

REPORT INFORMATION
  Report Type: Spontaneous
  Country: US (occurrence: US)
  Receive Date: 20230327
  Receipt Date: 20230327
  Transmission Date: 20230418
  Serious: No
  Sender: FDA-Public Use
  Company Number: US-SA-SAC20230323001626

PATIENT
  Sex: Female
  Weight: 40.816 kg

DRUGS (1)
  1. LUMIZYME [Suspect]
     Active Substance: ALGLUCOSIDASE ALFA
     Indication: Glycogen storage disease type II
     Dosage: 1550 MG, QW
     Route: 043
     Dates: start: 201905, end: 20230322

REACTIONS (1)
  - Weight increased [Unknown]
